FAERS Safety Report 16685401 (Version 1)
Quarter: 2019Q3

REPORT INFORMATION
  Report Type: Spontaneous
  Country: US (occurrence: US)
  Receive Date: 20190809
  Receipt Date: 20190809
  Transmission Date: 20191004
  Serious: Yes (Other)
  Sender: FDA-Public Use
  Company Number: US-SA-2019SA218053

PATIENT
  Age: 85 Year
  Sex: Female
  Weight: 52 kg

DRUGS (9)
  1. ELIQUIS [Suspect]
     Active Substance: APIXABAN
     Indication: HEART VALVE REPLACEMENT
  2. ELIQUIS [Suspect]
     Active Substance: APIXABAN
     Indication: AORTIC VALVE REPLACEMENT
     Dosage: 2.5 MG, BID
     Route: 048
     Dates: start: 20180627
  3. SIMVASTATIN. [Concomitant]
     Active Substance: SIMVASTATIN
     Indication: BLOOD CHOLESTEROL
     Dosage: UNK
  4. IBRANCE [Suspect]
     Active Substance: PALBOCICLIB
     Indication: NEOPLASM MALIGNANT
     Dosage: 100 MG, QCY
     Route: 048
     Dates: start: 20190616
  5. ELIQUIS [Suspect]
     Active Substance: APIXABAN
     Indication: HEART VALVE STENOSIS
  6. PLAVIX [Suspect]
     Active Substance: CLOPIDOGREL BISULFATE
     Indication: HEART VALVE STENOSIS
  7. EXEMESTANE. [Suspect]
     Active Substance: EXEMESTANE
     Indication: HORMONE THERAPY
     Dosage: 25 MG, QCY
     Route: 048
     Dates: start: 20190616
  8. CLOPIDOGREL BISULFATE. [Suspect]
     Active Substance: CLOPIDOGREL BISULFATE
     Dosage: 75 MG, QD
     Route: 048
     Dates: start: 20180627, end: 201906
  9. METOPROLOL. [Concomitant]
     Active Substance: METOPROLOL
     Indication: BLOOD PRESSURE MEASUREMENT
     Dosage: UNK
     Dates: start: 201802

REACTIONS (9)
  - Contusion [Not Recovered/Not Resolved]
  - Nausea [Unknown]
  - Metastases to lung [Unknown]
  - Neoplasm recurrence [Unknown]
  - Blood disorder [Unknown]
  - Metastases to breast [Unknown]
  - Asthenia [Unknown]
  - Malaise [Unknown]
  - Haemorrhage [Unknown]

NARRATIVE: CASE EVENT DATE: 2019
